FAERS Safety Report 17282175 (Version 1)
Quarter: 2020Q1

REPORT INFORMATION
  Report Type: Spontaneous
  Country: FR (occurrence: FR)
  Receive Date: 20200117
  Receipt Date: 20200117
  Transmission Date: 20200409
  Serious: Yes (Other)
  Sender: FDA-Public Use
  Company Number: FR-SA-2020SA009591

PATIENT
  Age: 4 Year
  Sex: Female
  Weight: 15.1 kg

DRUGS (4)
  1. CARBOPLATINE [Concomitant]
     Active Substance: CARBOPLATIN
     Dosage: UNK, UNK
  2. GRANOCYTE [Concomitant]
     Active Substance: LENOGRASTIM
     Dosage: UNK, UNK
  3. ETOPOSIDE. [Concomitant]
     Active Substance: ETOPOSIDE
     Dosage: UNK, UNK
  4. MOZOBIL [Suspect]
     Active Substance: PLERIXAFOR
     Indication: HAEMATOPOIETIC STEM CELL MOBILISATION
     Dosage: 4 MG, 1X
     Route: 058
     Dates: start: 20191219

REACTIONS (2)
  - Sleep terror [Recovered/Resolved]
  - Hallucination, visual [Recovered/Resolved]

NARRATIVE: CASE EVENT DATE: 20191219
